FAERS Safety Report 23620407 (Version 1)
Quarter: 2024Q1

REPORT INFORMATION
  Report Type: Spontaneous
  Country: NO (occurrence: NO)
  Receive Date: 20240312
  Receipt Date: 20240312
  Transmission Date: 20240410
  Serious: Yes (Death)
  Sender: FDA-Public Use
  Company Number: NO-AMGEN-NORSP2024047139

PATIENT
  Age: 70 Year
  Sex: Male

DRUGS (3)
  1. KYPROLIS [Suspect]
     Active Substance: CARFILZOMIB
     Indication: Plasma cell myeloma
     Dosage: UNK UNK, CYCLICAL, 30 MILLIGRAM, CYCLICAL, 128 MG WEEKLY IN 3 OUT OF 4 WEEKS IN 4-WEEK CYCLES.LAST D
     Route: 042
     Dates: start: 20231121, end: 20240214
  2. ISATUXIMAB [Concomitant]
     Active Substance: ISATUXIMAB
     Indication: Plasma cell myeloma
     Dosage: UNK
     Dates: start: 202311
  3. DEXAMETHASONE [Concomitant]
     Active Substance: DEXAMETHASONE
     Indication: Plasma cell myeloma
     Dosage: UNK
     Dates: start: 202311

REACTIONS (2)
  - Death [Fatal]
  - Sudden death [Fatal]

NARRATIVE: CASE EVENT DATE: 20240216
